FAERS Safety Report 17366914 (Version 1)
Quarter: 2020Q1

REPORT INFORMATION
  Report Type: Spontaneous
  Country: RO (occurrence: RO)
  Receive Date: 20200204
  Receipt Date: 20200204
  Transmission Date: 20200409
  Serious: Yes (Other)
  Sender: FDA-Public Use
  Company Number: RO-PFIZER INC-2019167812

PATIENT
  Age: 1 Week
  Sex: Female

DRUGS (3)
  1. ARTHROTEC [Suspect]
     Active Substance: DICLOFENAC SODIUM\MISOPROSTOL
     Indication: ANTIINFLAMMATORY THERAPY
     Dosage: UNK, 2X/DAY (EVERY 12 HOURS)
     Route: 063
     Dates: start: 20190113
  2. PROTECTIS [Concomitant]
  3. AUGMENTINE [AMOXICILLIN;CLAVULANIC ACID] [Concomitant]
     Active Substance: AMOXICILLIN\CLAVULANIC ACID
     Dosage: UNK
     Route: 063

REACTIONS (5)
  - Diarrhoea neonatal [Recovering/Resolving]
  - Gastrointestinal sounds abnormal [Recovering/Resolving]
  - Epigastric discomfort [Recovering/Resolving]
  - Exposure via breast milk [Unknown]
  - Abdominal pain upper [Recovering/Resolving]

NARRATIVE: CASE EVENT DATE: 20190113
